FAERS Safety Report 6756369-6 (Version None)
Quarter: 2010Q2

REPORT INFORMATION
  Report Type: 
  Country: None (occurrence: None)
  Receive Date: 20100604
  Receipt Date: 20100526
  Transmission Date: 20101027
  Serious: Yes (Other)
  Sender: FDA-Public Use
  Company Number: JP-ROCHE-707079

PATIENT
  Sex: Male

DRUGS (3)
  1. CAPECITABINE [Suspect]
     Indication: COLON CANCER
     Dosage: DRUG REPORTED AS XELODA 300(CAPECITABINE)
     Route: 048
     Dates: start: 20090630, end: 20090713
  2. CAPECITABINE [Suspect]
     Dosage: DRUG REPORTED AS XELODA 300(CAPECITABINE)
     Route: 048
     Dates: start: 20090722, end: 20090804
  3. CAPECITABINE [Suspect]
     Dosage: DRUG REPORTED AS XELODA 300(CAPECITABINE)
     Route: 048
     Dates: start: 20090811, end: 20090824

REACTIONS (1)
  - INTESTINAL OBSTRUCTION [None]
